FAERS Safety Report 4927127-X (Version None)
Quarter: 2006Q1

REPORT INFORMATION
  Report Type: 
  Country: None (occurrence: None)
  Receive Date: 20060222
  Receipt Date: 20060210
  Transmission Date: 20060701
  Serious: Yes (Hospitalization)
  Sender: FDA-Public Use
  Company Number: 2006PV008501

PATIENT
  Age: 83 Year
  Sex: Male
  Weight: 75.7507 kg

DRUGS (15)
  1. BYETTA [Suspect]
     Indication: DIABETES MELLITUS
     Dosage: 10 MCG BID SC ; 5 MCG BID SC
     Route: 058
     Dates: start: 20051216, end: 20060116
  2. BYETTA [Suspect]
     Indication: DIABETES MELLITUS
     Dosage: 10 MCG BID SC ; 5 MCG BID SC
     Route: 058
     Dates: start: 20060117
  3. ACTOS [Concomitant]
  4. AMARYL [Concomitant]
  5. PREDNISONE [Concomitant]
  6. TOPROL [Concomitant]
  7. NITROGLYCERIN [Concomitant]
  8. NITROGLYCERIN [Concomitant]
  9. PRAVACHOL [Concomitant]
  10. ASPIRIN [Concomitant]
  11. L-THYROXIN [Concomitant]
  12. EFFEXOR XR [Concomitant]
  13. REMINYL [Concomitant]
  14. NAMENDA [Concomitant]
  15. FLOMAX [Concomitant]

REACTIONS (11)
  - ATRIOVENTRICULAR BLOCK SECOND DEGREE [None]
  - BLOOD CREATININE INCREASED [None]
  - BLOOD GLUCOSE INCREASED [None]
  - BLOOD UREA INCREASED [None]
  - CHROMATOPSIA [None]
  - DELIRIUM [None]
  - DISORIENTATION [None]
  - GLYCOSYLATED HAEMOGLOBIN INCREASED [None]
  - INCORRECT DRUG DOSAGE FORM ADMINISTERED [None]
  - PHOTOPSIA [None]
  - TRANSIENT ISCHAEMIC ATTACK [None]
